FAERS Safety Report 22263172 (Version 1)
Quarter: 2023Q2

REPORT INFORMATION
  Report Type: Report from Study
  Country: MX (occurrence: MX)
  Receive Date: 20230428
  Receipt Date: 20230428
  Transmission Date: 20230721
  Serious: Yes (Hospitalization, Disabling, Other)
  Sender: FDA-Public Use
  Company Number: MX-ABBVIE-4744443

PATIENT
  Age: 47 Year
  Sex: Male
  Weight: 85 kg

DRUGS (5)
  1. VENCLEXTA [Suspect]
     Active Substance: VENETOCLAX
     Indication: Chronic lymphocytic leukaemia
     Dosage: END DATE WAS IN 2020.
     Route: 048
     Dates: start: 20200615
  2. VENCLEXTA [Suspect]
     Active Substance: VENETOCLAX
     Indication: Chronic lymphocytic leukaemia
     Route: 048
     Dates: start: 2021, end: 2021
  3. VENCLEXTA [Suspect]
     Active Substance: VENETOCLAX
     Indication: Chronic lymphocytic leukaemia
     Route: 048
     Dates: start: 202304
  4. GAZYVA [Concomitant]
     Active Substance: OBINUTUZUMAB
     Indication: Product used for unknown indication
     Dosage: 8 DOSES IN TOTAL
     Dates: start: 2023
  5. IVABRADINE [Concomitant]
     Active Substance: IVABRADINE
     Indication: Tachycardia
     Dates: start: 2020

REACTIONS (19)
  - Mobility decreased [Recovered/Resolved]
  - COVID-19 [Recovered/Resolved with Sequelae]
  - Neutrophil count decreased [Recovered/Resolved]
  - Pneumonia [Recovered/Resolved]
  - Arrhythmia [Recovered/Resolved]
  - Tachycardia [Recovering/Resolving]
  - Restrictive pulmonary disease [Recovering/Resolving]
  - COVID-19 [Recovered/Resolved with Sequelae]
  - Herpes virus infection [Recovering/Resolving]
  - Diarrhoea [Recovered/Resolved]
  - Lymphocyte count decreased [Recovering/Resolving]
  - Pneumonia [Recovered/Resolved]
  - Immunosuppression [Recovering/Resolving]
  - Discomfort [Recovered/Resolved]
  - Pneumonia [Recovered/Resolved]
  - Pneumonia [Recovered/Resolved]
  - Diarrhoea [Recovering/Resolving]
  - White blood cell count decreased [Recovering/Resolving]
  - Leukaemia recurrent [Unknown]

NARRATIVE: CASE EVENT DATE: 20200801
